FAERS Safety Report 13626656 (Version 2)
Quarter: 2019Q3

REPORT INFORMATION
  Report Type: Report from Study
  Country: JP (occurrence: JP)
  Receive Date: 20170608
  Receipt Date: 20190722
  Transmission Date: 20191004
  Serious: Yes (Hospitalization, Other)
  Sender: FDA-Public Use
  Company Number: JP-ACTELION-A-CH2017-154777

PATIENT
  Age: 73 Year
  Sex: Female
  Weight: 49.5 kg

DRUGS (20)
  1. PREDNISOLONE. [Concomitant]
     Active Substance: PREDNISOLONE
  2. BREDININ [Concomitant]
     Active Substance: MIZORIBINE
  3. TRACLEER [Suspect]
     Active Substance: BOSENTAN
     Dosage: 62.5 MG, QD
     Route: 048
     Dates: start: 20170217
  4. MAINTATE [Concomitant]
     Active Substance: BISOPROLOL FUMARATE
  5. LIVALO [Concomitant]
     Active Substance: PITAVASTATIN CALCIUM
  6. LANIRAPID [Concomitant]
     Active Substance: METILDIGOXIN
  7. MIYA-BM [Concomitant]
     Active Substance: CLOSTRIDIUM BUTYRICUM SPORES STRAIN M-55
  8. JUVELA N [Concomitant]
     Active Substance: TOCOPHERYL NICOTINATE, D-.ALPHA.
  9. CONIEL [Concomitant]
     Active Substance: BENIDIPINE HYDROCHLORIDE
  10. PRAZAXA [Concomitant]
     Active Substance: DABIGATRAN ETEXILATE MESYLATE
  11. DENOTAS [Concomitant]
     Active Substance: CALCIUM CARBONATE\CHOLECALCIFEROL\MAGNESIUM CARBONATE
  12. ALLEGRA [Concomitant]
     Active Substance: FEXOFENADINE HYDROCHLORIDE
  13. ETHYL ICOSAPENTATE [Concomitant]
     Active Substance: ICOSAPENT ETHYL
  14. TRACLEER [Suspect]
     Active Substance: BOSENTAN
     Indication: SCLERODERMA ASSOCIATED DIGITAL ULCER
     Dosage: 62.5 MG, BID
     Route: 048
     Dates: start: 20170120, end: 20170216
  15. PRALIA [Concomitant]
     Active Substance: DENOSUMAB
  16. NEXIUM [Concomitant]
     Active Substance: ESOMEPRAZOLE MAGNESIUM
  17. CARELOAD [Concomitant]
     Active Substance: BERAPROST SODIUM
  18. ANPLAG [Concomitant]
     Active Substance: SARPOGRELATE
  19. OPALMON [Concomitant]
     Active Substance: LIMAPROST
  20. CINAL [Concomitant]
     Active Substance: ASCORBIC ACID\CALCIUM PANTOTHENATE

REACTIONS (3)
  - Patella fracture [Recovered/Resolved]
  - Oedema [Recovering/Resolving]
  - Cardiac failure [Recovering/Resolving]

NARRATIVE: CASE EVENT DATE: 20170127
